FAERS Safety Report 20767946 (Version 10)
Quarter: 2023Q1

REPORT INFORMATION
  Report Type: Report from Study
  Country: CN (occurrence: CN)
  Receive Date: 20220429
  Receipt Date: 20230303
  Transmission Date: 20230418
  Serious: Yes (Other)
  Sender: FDA-Public Use
  Company Number: CN-TAKEDA-2021TUS040324

PATIENT
  Age: 53 Year
  Sex: Male
  Weight: 70.975 kg

DRUGS (169)
  1. IXAZOMIB [Suspect]
     Active Substance: IXAZOMIB
     Indication: Plasma cell myeloma
     Dosage: 4 MILLIGRAM, 1/WEEK
     Route: 048
     Dates: start: 20210611
  2. DEXAMETHASONE SODIUM PHOSPHATE [Suspect]
     Active Substance: DEXAMETHASONE SODIUM PHOSPHATE
     Indication: Plasma cell myeloma
     Dosage: 20 MILLIGRAM
     Route: 042
     Dates: start: 20210611
  3. DEXAMETHASONE SODIUM PHOSPHATE [Suspect]
     Active Substance: DEXAMETHASONE SODIUM PHOSPHATE
     Dosage: 40 MILLIGRAM
     Route: 042
     Dates: start: 20220312, end: 20220312
  4. DEXAMETHASONE SODIUM PHOSPHATE [Suspect]
     Active Substance: DEXAMETHASONE SODIUM PHOSPHATE
     Dosage: 20 MILLIGRAM
     Route: 042
     Dates: start: 20220402, end: 20220402
  5. DOXORUBICIN HYDROCHLORIDE [Suspect]
     Active Substance: DOXORUBICIN HYDROCHLORIDE
     Indication: Plasma cell myeloma
     Dosage: 50 MILLIGRAM
     Route: 042
     Dates: start: 20210611, end: 20210611
  6. CYCLOPHOSPHAMIDE [Suspect]
     Active Substance: CYCLOPHOSPHAMIDE
     Indication: Product used for unknown indication
     Dosage: UNK
     Route: 065
  7. MIDAZOLAM MALEATE [Suspect]
     Active Substance: MIDAZOLAM MALEATE
     Indication: Product used for unknown indication
     Dosage: UNK
     Route: 065
  8. MELPHALAN [Suspect]
     Active Substance: MELPHALAN
     Indication: Product used for unknown indication
     Dosage: UNK
     Route: 065
  9. LOSEC [Concomitant]
     Active Substance: OMEPRAZOLE
     Indication: Prophylaxis
     Dosage: 20 MILLIGRAM, QD
     Route: 048
     Dates: start: 20210604, end: 20210610
  10. LOSEC [Concomitant]
     Active Substance: OMEPRAZOLE
     Dosage: 20 MILLIGRAM, QD
     Route: 048
     Dates: start: 20210711, end: 20210718
  11. LOSEC [Concomitant]
     Active Substance: OMEPRAZOLE
     Dosage: 20 MILLIGRAM, QD
     Route: 048
     Dates: start: 20210809, end: 20210816
  12. CEFPODOXIME PROXETIL [Concomitant]
     Active Substance: CEFPODOXIME PROXETIL
     Indication: Pneumonia
     Dosage: 200 MILLIGRAM, BID
     Route: 048
     Dates: start: 20210604, end: 20210610
  13. CEFPODOXIME PROXETIL [Concomitant]
     Active Substance: CEFPODOXIME PROXETIL
     Dosage: 0.2 GRAM, BID
     Route: 048
     Dates: start: 20220313, end: 20220414
  14. CEFPODOXIME PROXETIL [Concomitant]
     Active Substance: CEFPODOXIME PROXETIL
     Dosage: 0.2 GRAM, BID
     Route: 048
     Dates: start: 20220311, end: 20220313
  15. SODIUM CHLORIDE [Concomitant]
     Active Substance: SODIUM CHLORIDE
     Indication: Flushing
     Dosage: 10 MILLILITER, TID
     Route: 042
     Dates: start: 20210521, end: 20210604
  16. SODIUM CHLORIDE [Concomitant]
     Active Substance: SODIUM CHLORIDE
     Indication: Prophylaxis
     Dosage: 10 MILLILITER, TID
     Route: 042
     Dates: start: 20210610, end: 20210615
  17. SODIUM CHLORIDE [Concomitant]
     Active Substance: SODIUM CHLORIDE
     Dosage: 1000 MILLILITER
     Route: 050
     Dates: start: 20210610, end: 20210610
  18. HEPARIN SODIUM [Concomitant]
     Active Substance: HEPARIN SODIUM
     Indication: Flushing
     Dosage: UNK, 1/WEEK
     Route: 042
     Dates: start: 20210521, end: 20210604
  19. HEPARIN SODIUM [Concomitant]
     Active Substance: HEPARIN SODIUM
     Dosage: UNK, 1/WEEK
     Route: 042
     Dates: start: 20210610, end: 20210615
  20. LANSOPRAZOLE [Concomitant]
     Active Substance: LANSOPRAZOLE
     Indication: Prophylaxis
     Dosage: 30 MILLIGRAM, QD
     Route: 042
     Dates: start: 20210521, end: 20210526
  21. LANSOPRAZOLE [Concomitant]
     Active Substance: LANSOPRAZOLE
     Dosage: 30 MILLIGRAM, QD
     Route: 042
     Dates: start: 20210610, end: 20210615
  22. LANSOPRAZOLE [Concomitant]
     Active Substance: LANSOPRAZOLE
     Dosage: 30 MILLIGRAM, QD
     Route: 042
     Dates: start: 20210709, end: 20210711
  23. LANSOPRAZOLE [Concomitant]
     Active Substance: LANSOPRAZOLE
     Dosage: 30 MILLIGRAM
     Dates: start: 20220311, end: 20220311
  24. LANSOPRAZOLE [Concomitant]
     Active Substance: LANSOPRAZOLE
     Dosage: 30 MILLIGRAM, QD
     Route: 042
     Dates: start: 20210311, end: 20220313
  25. AMMONIUM GLYCYRRHIZATE\CYSTEINE [Concomitant]
     Active Substance: AMMONIUM GLYCYRRHIZATE\CYSTEINE
     Indication: Prophylaxis
     Dosage: 100 MILLILITER, QD
     Route: 042
     Dates: start: 20210521, end: 20210604
  26. AMMONIUM GLYCYRRHIZATE\CYSTEINE [Concomitant]
     Active Substance: AMMONIUM GLYCYRRHIZATE\CYSTEINE
     Dosage: 100 MILLILITER, QD
     Route: 042
     Dates: start: 20210610, end: 20210615
  27. AMMONIUM GLYCYRRHIZATE\CYSTEINE [Concomitant]
     Active Substance: AMMONIUM GLYCYRRHIZATE\CYSTEINE
     Dosage: 100 MILLILITER, QD
     Route: 042
     Dates: start: 20210709, end: 20210711
  28. AMMONIUM GLYCYRRHIZATE\CYSTEINE [Concomitant]
     Active Substance: AMMONIUM GLYCYRRHIZATE\CYSTEINE
     Dosage: 100 MILLILITER, QD
     Route: 042
     Dates: start: 20211007, end: 20211014
  29. AMMONIUM GLYCYRRHIZATE\CYSTEINE [Concomitant]
     Active Substance: AMMONIUM GLYCYRRHIZATE\CYSTEINE
     Dosage: 100 MILLILITER
     Route: 042
     Dates: start: 20211007, end: 20211007
  30. AMMONIUM GLYCYRRHIZATE\CYSTEINE [Concomitant]
     Active Substance: AMMONIUM GLYCYRRHIZATE\CYSTEINE
     Dosage: 100 MILLILITER, QD
     Route: 042
     Dates: start: 20211117, end: 20211121
  31. AMMONIUM GLYCYRRHIZATE\CYSTEINE [Concomitant]
     Active Substance: AMMONIUM GLYCYRRHIZATE\CYSTEINE
     Dosage: 100 MILLILITER, QD
     Route: 042
     Dates: start: 20211127, end: 20211207
  32. AMMONIUM GLYCYRRHIZATE\CYSTEINE [Concomitant]
     Active Substance: AMMONIUM GLYCYRRHIZATE\CYSTEINE
     Dosage: 100 MILLILITER, BID
     Route: 042
     Dates: start: 20220311, end: 20220311
  33. AMMONIUM GLYCYRRHIZATE\CYSTEINE [Concomitant]
     Active Substance: AMMONIUM GLYCYRRHIZATE\CYSTEINE
     Dosage: 100 MILLILITER, BID
     Route: 042
     Dates: start: 20220311, end: 20220313
  34. AMMONIUM GLYCYRRHIZATE\CYSTEINE [Concomitant]
     Active Substance: AMMONIUM GLYCYRRHIZATE\CYSTEINE
     Dosage: 100 MILLILITER
     Route: 042
     Dates: start: 20220310, end: 20220310
  35. AMMONIUM GLYCYRRHIZATE\CYSTEINE [Concomitant]
     Active Substance: AMMONIUM GLYCYRRHIZATE\CYSTEINE
     Dosage: 100 MILLILITER, QD
     Route: 042
     Dates: start: 20220331, end: 20220402
  36. AMMONIUM GLYCYRRHIZATE\CYSTEINE [Concomitant]
     Active Substance: AMMONIUM GLYCYRRHIZATE\CYSTEINE
     Dosage: 100 MILLILITER, QD
     Route: 042
     Dates: start: 20220407, end: 20220410
  37. AMMONIUM GLYCYRRHIZATE\CYSTEINE [Concomitant]
     Active Substance: AMMONIUM GLYCYRRHIZATE\CYSTEINE
     Dosage: 100 MILLILITER, QD
     Route: 042
     Dates: start: 20220407, end: 20220407
  38. AMMONIUM GLYCYRRHIZATE\CYSTEINE [Concomitant]
     Active Substance: AMMONIUM GLYCYRRHIZATE\CYSTEINE
     Dosage: 100 MILLILITER, QD
     Route: 042
     Dates: start: 20220415, end: 20220420
  39. AMMONIUM GLYCYRRHIZATE\CYSTEINE [Concomitant]
     Active Substance: AMMONIUM GLYCYRRHIZATE\CYSTEINE
     Dosage: 100 MILLILITER, QD
     Route: 042
     Dates: start: 20220415, end: 20220415
  40. AMMONIUM GLYCYRRHIZATE\CYSTEINE [Concomitant]
     Active Substance: AMMONIUM GLYCYRRHIZATE\CYSTEINE
     Dosage: 100 MILLILITER, QD
     Route: 042
     Dates: start: 20220514, end: 20220515
  41. AMMONIUM GLYCYRRHIZATE\CYSTEINE [Concomitant]
     Active Substance: AMMONIUM GLYCYRRHIZATE\CYSTEINE
     Dosage: 100 MILLILITER, QD
     Route: 042
     Dates: start: 20220514, end: 20220514
  42. AMMONIUM GLYCYRRHIZATE\CYSTEINE [Concomitant]
     Active Substance: AMMONIUM GLYCYRRHIZATE\CYSTEINE
     Dosage: 100 MILLILITER, QD
     Route: 042
     Dates: start: 20220617, end: 20220619
  43. CEFOPERAZONE\TAZOBACTAM SODIUM [Concomitant]
     Active Substance: CEFOPERAZONE\TAZOBACTAM SODIUM
     Indication: Pneumonia
     Dosage: 2 GRAM
     Route: 042
     Dates: start: 20210522, end: 20210525
  44. CEFOPERAZONE\TAZOBACTAM SODIUM [Concomitant]
     Active Substance: CEFOPERAZONE\TAZOBACTAM SODIUM
     Dosage: 1 GRAM, BID
     Route: 042
     Dates: start: 20211128, end: 20211206
  45. CEFOPERAZONE\TAZOBACTAM SODIUM [Concomitant]
     Active Substance: CEFOPERAZONE\TAZOBACTAM SODIUM
     Dosage: 3 GRAM, BID
     Route: 042
     Dates: start: 20220415, end: 20220415
  46. TIGECYCLINE [Concomitant]
     Active Substance: TIGECYCLINE
     Indication: Pneumonia
     Dosage: 0.05 GRAM
     Route: 042
     Dates: start: 20210522, end: 20210525
  47. PIPERACILLIN SODIUM\TAZOBACTAM SODIUM [Concomitant]
     Active Substance: PIPERACILLIN SODIUM\TAZOBACTAM SODIUM
     Indication: Pneumonia
     Dosage: 4.5 GRAM
     Route: 042
     Dates: start: 20210526, end: 20210603
  48. CASPOFUNGIN ACETATE [Concomitant]
     Active Substance: CASPOFUNGIN ACETATE
     Indication: Pneumonia
     Dosage: 50 MILLIGRAM, QD
     Route: 042
     Dates: start: 20210526, end: 20210604
  49. GANCICLOVIR [Concomitant]
     Active Substance: GANCICLOVIR
     Indication: Pneumonia
     Dosage: 0.35 GRAM, BID
     Route: 042
     Dates: start: 20210526, end: 20210603
  50. VORICONAZOLE [Concomitant]
     Active Substance: VORICONAZOLE
     Indication: Pneumonia
     Dosage: 200 MILLIGRAM
     Route: 042
     Dates: start: 20210525, end: 20210525
  51. VORICONAZOLE [Concomitant]
     Active Substance: VORICONAZOLE
     Dosage: 200 MILLIGRAM
     Route: 042
     Dates: start: 20210526, end: 20210527
  52. VORICONAZOLE [Concomitant]
     Active Substance: VORICONAZOLE
     Dosage: 200 MILLIGRAM, QD
     Route: 042
     Dates: start: 20210602, end: 20210604
  53. VORICONAZOLE [Concomitant]
     Active Substance: VORICONAZOLE
     Dosage: 200 MILLIGRAM, BID
     Route: 048
     Dates: start: 20210604, end: 20210610
  54. VORICONAZOLE [Concomitant]
     Active Substance: VORICONAZOLE
     Dosage: 200 MILLIGRAM
     Route: 042
     Dates: start: 20210610, end: 20210615
  55. VORICONAZOLE [Concomitant]
     Active Substance: VORICONAZOLE
     Dosage: 200 MILLIGRAM, QD
     Route: 042
     Dates: start: 20210710, end: 20210711
  56. VORICONAZOLE [Concomitant]
     Active Substance: VORICONAZOLE
     Dosage: 200 MILLIGRAM
     Route: 042
     Dates: start: 20211127, end: 20211206
  57. VORICONAZOLE [Concomitant]
     Active Substance: VORICONAZOLE
     Dosage: 200 MILLIGRAM
     Route: 042
     Dates: start: 20220322, end: 20220326
  58. LIDOCAINE HYDROCHLORIDE [Concomitant]
     Active Substance: LIDOCAINE HYDROCHLORIDE
     Indication: Local anaesthesia
     Dosage: 5 MILLILITER
     Route: 061
     Dates: start: 20210521, end: 20210521
  59. LIDOCAINE HYDROCHLORIDE [Concomitant]
     Active Substance: LIDOCAINE HYDROCHLORIDE
     Indication: Anaesthesia
     Dosage: 5 MILLILITER
     Route: 061
     Dates: start: 20210524, end: 20210524
  60. LIDOCAINE HYDROCHLORIDE [Concomitant]
     Active Substance: LIDOCAINE HYDROCHLORIDE
     Indication: Local anaesthesia
     Dosage: 5 MILLILITER
     Route: 061
     Dates: start: 20210529, end: 20210529
  61. LIDOCAINE HYDROCHLORIDE [Concomitant]
     Active Substance: LIDOCAINE HYDROCHLORIDE
     Dosage: 5 MILLILITER
     Route: 061
     Dates: start: 20220618, end: 20220618
  62. PANTOPRAZOLE SODIUM [Concomitant]
     Active Substance: PANTOPRAZOLE SODIUM
     Indication: Prophylaxis
     Dosage: 40 MILLIGRAM
     Route: 042
     Dates: start: 20210527, end: 20210527
  63. TROPISETRON HYDROCHLORIDE [Concomitant]
     Active Substance: TROPISETRON HYDROCHLORIDE
     Indication: Prophylaxis of nausea and vomiting
     Dosage: 4 MILLIGRAM, QD
     Route: 042
     Dates: start: 20210611, end: 20210614
  64. TROPISETRON HYDROCHLORIDE [Concomitant]
     Active Substance: TROPISETRON HYDROCHLORIDE
     Dosage: 4 MILLIGRAM, QD
     Route: 042
     Dates: start: 20210709, end: 20210711
  65. SODIUM BICARBONATE [Concomitant]
     Active Substance: SODIUM BICARBONATE
     Indication: Urine alkalinisation therapy
     Dosage: 500 MILLIGRAM, TID
     Route: 048
     Dates: start: 20210611, end: 20210614
  66. SODIUM BICARBONATE [Concomitant]
     Active Substance: SODIUM BICARBONATE
     Indication: Prophylaxis
     Dosage: 250 MILLILITER
     Route: 050
     Dates: start: 20210610, end: 20210610
  67. HYDROGEN PEROXIDE [Concomitant]
     Active Substance: HYDROGEN PEROXIDE
     Indication: Infection prophylaxis
     Dosage: 250 MILLILITER
     Route: 050
     Dates: start: 20210610, end: 20210610
  68. DEXTROSE [Concomitant]
     Active Substance: DEXTROSE
     Indication: Flushing
     Dosage: 50 MILLILITER
     Route: 042
     Dates: start: 20210611, end: 20210611
  69. POTASSIUM CHLORIDE [Concomitant]
     Active Substance: POTASSIUM CHLORIDE
     Indication: Prophylaxis
     Dosage: 30 MILLILITER
     Route: 048
     Dates: start: 20210612, end: 20210612
  70. DEXRAZOXANE [Concomitant]
     Active Substance: DEXRAZOXANE
     Indication: Cardiotoxicity
     Dosage: 0.25 GRAM
     Route: 042
     Dates: start: 20210709, end: 20210709
  71. ACYCLOVIR [Concomitant]
     Active Substance: ACYCLOVIR
     Indication: Prophylaxis
     Dosage: 0.4 GRAM
     Route: 048
     Dates: start: 20210709, end: 20210709
  72. ACYCLOVIR [Concomitant]
     Active Substance: ACYCLOVIR
     Dosage: 0.4 GRAM, TID
     Route: 048
     Dates: start: 20210711, end: 20210718
  73. ACYCLOVIR [Concomitant]
     Active Substance: ACYCLOVIR
     Dosage: 0.4 GRAM, TID
     Route: 048
     Dates: start: 20210809, end: 20210816
  74. ACYCLOVIR [Concomitant]
     Active Substance: ACYCLOVIR
     Dosage: 0.4 GRAM, TID
     Route: 048
     Dates: start: 20220515, end: 20220525
  75. ACYCLOVIR [Concomitant]
     Active Substance: ACYCLOVIR
     Dosage: 0.4 GRAM, TID
     Route: 048
     Dates: start: 20220525
  76. ACYCLOVIR [Concomitant]
     Active Substance: ACYCLOVIR
     Dosage: 0.4 GRAM, QD
     Route: 048
     Dates: start: 20210616, end: 20210623
  77. ACYCLOVIR [Concomitant]
     Active Substance: ACYCLOVIR
     Dosage: 0.4 GRAM, QD
     Route: 048
     Dates: start: 20220416, end: 20220417
  78. ACYCLOVIR [Concomitant]
     Active Substance: ACYCLOVIR
     Dosage: 0.4 GRAM, QD
     Route: 048
     Dates: start: 20220420, end: 20220427
  79. LACTULOSE [Concomitant]
     Active Substance: LACTULOSE
     Indication: Constipation
     Dosage: 66.7 GRAM
     Route: 048
     Dates: start: 20210710, end: 20210710
  80. LACTULOSE [Concomitant]
     Active Substance: LACTULOSE
     Dosage: 66.7 GRAM
     Route: 048
     Dates: start: 20210614, end: 20210614
  81. DEXAMETHASONE ACETATE [Concomitant]
     Active Substance: DEXAMETHASONE ACETATE
     Indication: Plasma cell myeloma
     Dosage: 20 MILLIGRAM, 1/WEEK
     Route: 048
     Dates: start: 20210716, end: 20210723
  82. DEXAMETHASONE ACETATE [Concomitant]
     Active Substance: DEXAMETHASONE ACETATE
     Dosage: 20 MILLIGRAM, 1/WEEK
     Route: 048
     Dates: start: 20210601, end: 20210625
  83. DEXAMETHASONE ACETATE [Concomitant]
     Active Substance: DEXAMETHASONE ACETATE
     Dosage: 20 MILLIGRAM, 1/WEEK
     Route: 048
     Dates: start: 20210813, end: 20210820
  84. CALTRATE 600+D [Concomitant]
     Indication: Prophylaxis
     Dosage: UNK, QD
     Route: 048
     Dates: start: 20210711, end: 20210718
  85. CALTRATE 600+D [Concomitant]
     Dosage: UNK, QD
     Route: 048
     Dates: start: 20210809, end: 20210816
  86. FLUTICASONE [Concomitant]
     Active Substance: FLUTICASONE
     Indication: Asthma
     Dosage: UNK, QD
     Route: 055
  87. VORICONAZOLE [Concomitant]
     Active Substance: VORICONAZOLE
     Indication: Pneumonia
     Dosage: 200 MILLIGRAM, BID
     Route: 048
     Dates: start: 20210604, end: 20210610
  88. VORICONAZOLE [Concomitant]
     Active Substance: VORICONAZOLE
     Dosage: 200 MILLIGRAM, BID
     Route: 048
     Dates: start: 20210615, end: 20210616
  89. VORICONAZOLE [Concomitant]
     Active Substance: VORICONAZOLE
     Dosage: 200 MILLIGRAM, BID
     Route: 048
     Dates: start: 20210616, end: 20210623
  90. VORICONAZOLE [Concomitant]
     Active Substance: VORICONAZOLE
     Dosage: 200 MILLIGRAM, BID
     Route: 048
     Dates: start: 20210711, end: 20210718
  91. VORICONAZOLE [Concomitant]
     Active Substance: VORICONAZOLE
     Dosage: 200 MILLIGRAM, BID
     Route: 048
     Dates: start: 20210809, end: 20210816
  92. OMEPRAZOLE [Concomitant]
     Active Substance: OMEPRAZOLE
     Indication: Prophylaxis
     Dosage: 20 MILLIGRAM, QD
     Route: 048
     Dates: start: 20211007, end: 20211016
  93. OMEPRAZOLE [Concomitant]
     Active Substance: OMEPRAZOLE
     Dosage: 20 MILLIGRAM
     Route: 048
     Dates: start: 20211007, end: 20211007
  94. OMEPRAZOLE [Concomitant]
     Active Substance: OMEPRAZOLE
     Dosage: 20 MILLIGRAM, QD
     Route: 048
     Dates: start: 20211117, end: 20211121
  95. OMEPRAZOLE [Concomitant]
     Active Substance: OMEPRAZOLE
     Dosage: 20 MILLIGRAM, QD
     Route: 048
     Dates: start: 20211127, end: 20211207
  96. AZASETRON HYDROCHLORIDE [Concomitant]
     Active Substance: AZASETRON HYDROCHLORIDE
     Indication: Prophylaxis of nausea and vomiting
     Dosage: 10 MILLIGRAM, QD
     Route: 042
     Dates: start: 20211012, end: 20211016
  97. AZASETRON HYDROCHLORIDE [Concomitant]
     Active Substance: AZASETRON HYDROCHLORIDE
     Dosage: 10 MILLIGRAM, QD
     Route: 042
     Dates: start: 20211118, end: 20211121
  98. MESNA [Concomitant]
     Active Substance: MESNA
     Indication: Prophylaxis
     Dosage: 0.8 GRAM, QD
     Route: 042
     Dates: start: 20211012, end: 20211014
  99. MESNA [Concomitant]
     Active Substance: MESNA
     Dosage: 0.8 GRAM, QD
     Route: 042
     Dates: start: 20211118, end: 20211120
  100. MAGNESIUM SULFATE [Concomitant]
     Active Substance: MAGNESIUM SULFATE
     Indication: Prophylaxis
     Dosage: 10 MILLILITER, QD
     Route: 042
     Dates: start: 20211012, end: 20211014
  101. MAGNESIUM SULFATE [Concomitant]
     Active Substance: MAGNESIUM SULFATE
     Dosage: 10 MILLILITER, QD
     Route: 042
     Dates: start: 20211118, end: 20211121
  102. POTASSIUM CHLORIDE [Concomitant]
     Active Substance: POTASSIUM CHLORIDE
     Indication: Prophylaxis
     Dosage: 7 MILLILITER, QD
     Route: 042
     Dates: start: 20211012, end: 20211014
  103. POTASSIUM CHLORIDE [Concomitant]
     Active Substance: POTASSIUM CHLORIDE
     Dosage: 15 MILLILITER, TID
     Route: 042
     Dates: start: 20211012, end: 20211014
  104. POTASSIUM CHLORIDE [Concomitant]
     Active Substance: POTASSIUM CHLORIDE
     Dosage: 7 MILLILITER, QD
     Route: 042
     Dates: start: 20211118, end: 20211121
  105. POTASSIUM CHLORIDE [Concomitant]
     Active Substance: POTASSIUM CHLORIDE
     Dosage: 15 MILLILITER, TID
     Route: 042
     Dates: start: 20211118, end: 20211120
  106. POTASSIUM CHLORIDE [Concomitant]
     Active Substance: POTASSIUM CHLORIDE
     Dosage: 7 MILLILITER
     Route: 042
     Dates: start: 20220310, end: 20220310
  107. POTASSIUM CHLORIDE [Concomitant]
     Active Substance: POTASSIUM CHLORIDE
     Dosage: 7 MILLILITER
     Route: 042
     Dates: start: 20220311, end: 20220311
  108. FUROSEMIDE [Concomitant]
     Active Substance: FUROSEMIDE
     Indication: Polyuria
     Dosage: 20 MILLIGRAM
     Route: 042
     Dates: start: 20211118, end: 20211120
  109. FUROSEMIDE [Concomitant]
     Active Substance: FUROSEMIDE
     Dosage: 20 MILLIGRAM
     Route: 042
     Dates: start: 20211012, end: 20211014
  110. Aprepitant accord [Concomitant]
     Indication: Prophylaxis of nausea and vomiting
     Dosage: UNK
     Route: 048
     Dates: start: 20211013, end: 20211013
  111. VITAMIN C [Concomitant]
     Active Substance: ASCORBIC ACID
     Indication: Prophylaxis
     Dosage: 1 GRAM, QD
     Route: 042
     Dates: start: 20211128, end: 20211206
  112. ETHAMSYLATE [Concomitant]
     Active Substance: ETHAMSYLATE
     Indication: Prophylaxis
     Dosage: 1000 MILLIGRAM, QD
     Route: 042
     Dates: start: 20211128, end: 20211206
  113. THROMBOPOIETIN [Concomitant]
     Active Substance: THROMBOPOIETIN
     Indication: Platelet count increased
     Dosage: UNK UNK, QD
     Route: 058
     Dates: start: 20211128, end: 20211206
  114. DICLOFENAC SODIUM [Concomitant]
     Active Substance: DICLOFENAC SODIUM
     Indication: Analgesic therapy
     Dosage: 75 MILLIGRAM
     Route: 048
     Dates: start: 20211205, end: 20211205
  115. ERYTHROMYCIN [Concomitant]
     Active Substance: ERYTHROMYCIN
     Indication: Prophylaxis
     Dosage: 0.1 GRAM
     Route: 065
     Dates: start: 20211202, end: 20211202
  116. LORAZEPAM [Concomitant]
     Active Substance: LORAZEPAM
     Indication: Sleep paralysis
     Dosage: 1 MILLIGRAM, QD
     Route: 048
     Dates: start: 20211205, end: 20211205
  117. LOPERAMIDE HYDROCHLORIDE [Concomitant]
     Active Substance: LOPERAMIDE HYDROCHLORIDE
     Indication: Gastritis
     Dosage: 2 MILLIGRAM, QD
     Route: 048
     Dates: start: 20220313, end: 20220325
  118. LOPERAMIDE HYDROCHLORIDE [Concomitant]
     Active Substance: LOPERAMIDE HYDROCHLORIDE
     Dosage: 2 MILLIGRAM, QD
     Route: 048
     Dates: start: 20220311, end: 20220313
  119. LOPERAMIDE HYDROCHLORIDE [Concomitant]
     Active Substance: LOPERAMIDE HYDROCHLORIDE
     Dosage: 4 MILLIGRAM
     Route: 048
     Dates: start: 20220311, end: 20220311
  120. RABEPRAZOLE SODIUM [Concomitant]
     Active Substance: RABEPRAZOLE SODIUM
     Indication: Prophylaxis
     Dosage: 20 MILLIGRAM, QD
     Route: 048
     Dates: start: 20220313, end: 20220317
  121. RABEPRAZOLE SODIUM [Concomitant]
     Active Substance: RABEPRAZOLE SODIUM
     Dosage: 20 MILLIGRAM, QD
     Route: 048
     Dates: start: 20220325, end: 20220331
  122. RABEPRAZOLE SODIUM [Concomitant]
     Active Substance: RABEPRAZOLE SODIUM
     Dosage: 20 MILLIGRAM, QD
     Route: 048
     Dates: start: 20220403, end: 20220427
  123. RABEPRAZOLE SODIUM [Concomitant]
     Active Substance: RABEPRAZOLE SODIUM
     Dosage: 20 MILLIGRAM, QD
     Route: 048
     Dates: start: 20220515, end: 20220522
  124. RABEPRAZOLE SODIUM [Concomitant]
     Active Substance: RABEPRAZOLE SODIUM
     Dosage: 20 MILLIGRAM, QD
     Route: 048
     Dates: start: 20220620
  125. RABEPRAZOLE SODIUM [Concomitant]
     Active Substance: RABEPRAZOLE SODIUM
     Dosage: 20 MILLIGRAM, QD
     Route: 048
     Dates: start: 20220318, end: 20220325
  126. RABEPRAZOLE SODIUM [Concomitant]
     Active Substance: RABEPRAZOLE SODIUM
     Dosage: 20 MILLIGRAM
     Route: 048
     Dates: start: 20220407, end: 20220407
  127. RABEPRAZOLE SODIUM [Concomitant]
     Active Substance: RABEPRAZOLE SODIUM
     Dosage: 20 MILLIGRAM
     Route: 048
     Dates: start: 20220415, end: 20220415
  128. RABEPRAZOLE SODIUM [Concomitant]
     Active Substance: RABEPRAZOLE SODIUM
     Dosage: 20 MILLIGRAM, QD
     Route: 048
     Dates: start: 20220514, end: 20220515
  129. RABEPRAZOLE SODIUM [Concomitant]
     Active Substance: RABEPRAZOLE SODIUM
     Dosage: 20 MILLIGRAM
     Route: 048
     Dates: start: 20220514, end: 20220514
  130. RABEPRAZOLE SODIUM [Concomitant]
     Active Substance: RABEPRAZOLE SODIUM
     Dosage: 20 MILLIGRAM, QD
     Route: 048
     Dates: start: 20220617, end: 20220620
  131. RABEPRAZOLE SODIUM [Concomitant]
     Active Substance: RABEPRAZOLE SODIUM
     Dosage: 20 MILLIGRAM, QD
     Route: 048
     Dates: start: 20220617, end: 20220618
  132. RABEPRAZOLE SODIUM [Concomitant]
     Active Substance: RABEPRAZOLE SODIUM
     Dosage: 20 MILLIGRAM, QD
     Route: 048
     Dates: start: 20220725, end: 20220804
  133. IVABRADINE HYDROCHLORIDE [Concomitant]
     Active Substance: IVABRADINE HYDROCHLORIDE
     Indication: Myocardial bridging
     Dosage: 5 MILLIGRAM, QD
     Route: 048
     Dates: start: 20220313, end: 20220407
  134. IVABRADINE HYDROCHLORIDE [Concomitant]
     Active Substance: IVABRADINE HYDROCHLORIDE
     Dosage: 5 MILLIGRAM, BID
     Route: 048
     Dates: start: 20220410, end: 20220414
  135. IVABRADINE HYDROCHLORIDE [Concomitant]
     Active Substance: IVABRADINE HYDROCHLORIDE
     Dosage: 5 MILLIGRAM, BID
     Route: 048
     Dates: start: 20220420, end: 20220427
  136. IVABRADINE HYDROCHLORIDE [Concomitant]
     Active Substance: IVABRADINE HYDROCHLORIDE
     Dosage: 5 MILLIGRAM, BID
     Route: 048
     Dates: start: 20220515, end: 20220522
  137. IVABRADINE HYDROCHLORIDE [Concomitant]
     Active Substance: IVABRADINE HYDROCHLORIDE
     Dosage: 5 MILLIGRAM, QD
     Route: 048
     Dates: start: 20220620
  138. IVABRADINE HYDROCHLORIDE [Concomitant]
     Active Substance: IVABRADINE HYDROCHLORIDE
     Dosage: 5 MILLIGRAM, QD
     Route: 048
     Dates: start: 20220725, end: 20220801
  139. MOXIFLOXACIN HYDROCHLORIDE [Concomitant]
     Active Substance: MOXIFLOXACIN HYDROCHLORIDE
     Indication: Pneumonia
     Dosage: 0.4 GRAM, QD
     Route: 048
     Dates: start: 20220325, end: 20220415
  140. MUPRICON [Concomitant]
     Indication: Herpes zoster
     Dosage: 0.5 GRAM, QD
     Route: 065
     Dates: start: 20220410, end: 20220420
  141. MOMETASONE FUROATE [Concomitant]
     Active Substance: MOMETASONE FUROATE
     Indication: Sinusitis
     Dosage: 100 MICROGRAM, QD
     Route: 065
     Dates: start: 20220410, end: 20220420
  142. METHYLCOBALAMIN [Concomitant]
     Active Substance: METHYLCOBALAMIN
     Indication: Central nervous system stimulation
     Dosage: 0.5 MILLIGRAM, TID
     Route: 048
     Dates: start: 20220420, end: 20220506
  143. METHYLCOBALAMIN [Concomitant]
     Active Substance: METHYLCOBALAMIN
     Dosage: 0.5 MILLIGRAM, TID
     Route: 048
     Dates: start: 20220515, end: 20220531
  144. METHYLCOBALAMIN [Concomitant]
     Active Substance: METHYLCOBALAMIN
     Dosage: 0.5 MILLIGRAM, TID
     Route: 048
     Dates: start: 20220620
  145. METHYLCOBALAMIN [Concomitant]
     Active Substance: METHYLCOBALAMIN
     Dosage: 0.5 MILLIGRAM, TID
     Route: 048
     Dates: start: 20220419, end: 20220420
  146. METHYLCOBALAMIN [Concomitant]
     Active Substance: METHYLCOBALAMIN
     Dosage: 0.5 MILLIGRAM
     Route: 048
     Dates: start: 20220419, end: 20220419
  147. Compound amino acid injection (14aa) [Concomitant]
     Indication: Parenteral nutrition
     Dosage: 250 MILLILITER
     Route: 042
     Dates: start: 20220310, end: 20220310
  148. BERBERINE [Concomitant]
     Active Substance: BERBERINE
     Indication: Gastritis
     Dosage: 0.9 GRAM
     Route: 048
     Dates: start: 20220311, end: 20220311
  149. PROMETHAZINE HYDROCHLORIDE [Concomitant]
     Active Substance: PROMETHAZINE HYDROCHLORIDE
     Indication: Allergy prophylaxis
     Dosage: 25 MILLIGRAM
     Route: 030
     Dates: start: 20220312, end: 20220312
  150. PROMETHAZINE HYDROCHLORIDE [Concomitant]
     Active Substance: PROMETHAZINE HYDROCHLORIDE
     Dosage: 25 MILLIGRAM
     Route: 030
     Dates: start: 20220402, end: 20220402
  151. PROMETHAZINE HYDROCHLORIDE [Concomitant]
     Active Substance: PROMETHAZINE HYDROCHLORIDE
     Dosage: 25 MILLIGRAM
     Route: 030
     Dates: start: 20220409, end: 20220409
  152. PROMETHAZINE HYDROCHLORIDE [Concomitant]
     Active Substance: PROMETHAZINE HYDROCHLORIDE
     Dosage: 25 MILLIGRAM
     Route: 030
     Dates: start: 20220514, end: 20220514
  153. PROMETHAZINE HYDROCHLORIDE [Concomitant]
     Active Substance: PROMETHAZINE HYDROCHLORIDE
     Dosage: 25 MILLIGRAM
     Route: 030
     Dates: start: 20220618, end: 20220618
  154. ESOMEPRAZOLE MAGNESIUM [Concomitant]
     Active Substance: ESOMEPRAZOLE MAGNESIUM
     Dosage: 20 MILLIGRAM, QD
     Route: 048
     Dates: start: 20220317, end: 20220318
  155. ESOMEPRAZOLE MAGNESIUM [Concomitant]
     Active Substance: ESOMEPRAZOLE MAGNESIUM
     Dosage: 20 MILLIGRAM, QD
     Route: 048
     Dates: start: 20220401, end: 20220403
  156. ESOMEPRAZOLE MAGNESIUM [Concomitant]
     Active Substance: ESOMEPRAZOLE MAGNESIUM
     Dosage: 20 MILLIGRAM, QD
     Route: 048
     Dates: start: 20220331, end: 20220401
  157. PIPERACILLIN SODIUM [Concomitant]
     Active Substance: PIPERACILLIN SODIUM
     Indication: Pneumonia
     Dosage: 4.5 GRAM
     Route: 042
     Dates: start: 20220318, end: 20220324
  158. PIPERACILLIN SODIUM [Concomitant]
     Active Substance: PIPERACILLIN SODIUM
     Dosage: 4.5 GRAM, BID
     Route: 042
     Dates: start: 20220318, end: 20220318
  159. PIPERACILLIN SODIUM [Concomitant]
     Active Substance: PIPERACILLIN SODIUM
     Dosage: 4.5 GRAM
     Route: 065
     Dates: start: 20220317, end: 20220317
  160. HEMOSTATIC [Concomitant]
     Indication: Prophylaxis
     Dosage: 1000 MILLIGRAM, QD
     Route: 042
     Dates: start: 20220318, end: 20220325
  161. HEMOSTATIC [Concomitant]
     Dosage: 1000 MILLIGRAM
     Route: 042
     Dates: start: 20220318, end: 20220318
  162. MOXIFLOXACIN [Concomitant]
     Active Substance: MOXIFLOXACIN
     Dosage: 250 MILLILITER, QD
     Route: 042
     Dates: start: 20220321, end: 20220325
  163. MOXIFLOXACIN [Concomitant]
     Active Substance: MOXIFLOXACIN
     Dosage: 250 MILLILITER, QD
     Route: 042
     Dates: start: 20220416, end: 20220420
  164. MOXIFLOXACIN [Concomitant]
     Active Substance: MOXIFLOXACIN
     Dosage: 250 MILLILITER
     Route: 042
     Dates: start: 20220416, end: 20220416
  165. ACYCLOVIR [Concomitant]
     Active Substance: ACYCLOVIR
     Indication: Herpes zoster
     Dosage: 0.25 GRAM
     Route: 042
     Dates: start: 20220417, end: 20220420
  166. CALCITRIOL [Concomitant]
     Active Substance: CALCITRIOL
     Indication: Osteoporosis
     Dosage: 0.25 MICROGRAM
     Route: 048
     Dates: start: 20220416, end: 20220416
  167. LENALIDOMIDE [Concomitant]
     Active Substance: LENALIDOMIDE
     Indication: Plasma cell myeloma
     Dosage: 25 MILLIGRAM, QD
     Route: 048
     Dates: start: 20210907, end: 20210927
  168. LENALIDOMIDE [Concomitant]
     Active Substance: LENALIDOMIDE
     Dosage: 25 MILLIGRAM, QD
     Route: 048
     Dates: start: 20220312, end: 20220423
  169. LENALIDOMIDE [Concomitant]
     Active Substance: LENALIDOMIDE
     Dosage: 25 MILLIGRAM, QD
     Route: 048
     Dates: start: 20220514, end: 20220604

REACTIONS (26)
  - Hypertrophic cardiomyopathy [Not Recovered/Not Resolved]
  - Cardiac failure [Not Recovered/Not Resolved]
  - Pneumonia [Not Recovered/Not Resolved]
  - Haemorrhoids [Not Recovered/Not Resolved]
  - Osteoporosis [Not Recovered/Not Resolved]
  - Abdominal distension [Recovered/Resolved]
  - Enteritis [Recovered/Resolved]
  - Gastritis [Recovered/Resolved]
  - Chest pain [Recovered/Resolved]
  - Chest discomfort [Recovered/Resolved]
  - Dyspnoea [Recovered/Resolved]
  - Colitis [Recovered/Resolved]
  - Supraventricular extrasystoles [Recovered/Resolved]
  - Hiccups [Recovered/Resolved]
  - Hypoaesthesia [Recovered/Resolved]
  - Ventricular extrasystoles [Recovered/Resolved]
  - Skin infection [Recovered/Resolved]
  - Rash pruritic [Recovered/Resolved]
  - Dermatitis allergic [Recovered/Resolved]
  - Nasal vestibulitis [Recovered/Resolved]
  - White blood cell count decreased [Recovered/Resolved]
  - Herpes zoster [Recovered/Resolved]
  - Back pain [Recovered/Resolved]
  - Constipation [Unknown]
  - Vomiting [Recovered/Resolved]
  - Off label use [Unknown]

NARRATIVE: CASE EVENT DATE: 20210614
